FAERS Safety Report 11384372 (Version 1)
Quarter: 2015Q3

REPORT INFORMATION
  Report Type: Spontaneous
  Country: US (occurrence: US)
  Receive Date: 20150811
  Receipt Date: 20150811
  Transmission Date: 20151125
  Serious: No
  Sender: FDA-Public Use
  Company Number: US-ELI_LILLY_AND_COMPANY-US201011001917

PATIENT
  Age: 53 Year
  Sex: Male
  Weight: 88.44 kg

DRUGS (3)
  1. CIALIS [Suspect]
     Active Substance: TADALAFIL
     Indication: ERECTILE DYSFUNCTION
     Dosage: 5 MG, DAILY (1/D)
  2. CIALIS [Suspect]
     Active Substance: TADALAFIL
     Dosage: 2.5 MG, QOD
  3. CIALIS [Suspect]
     Active Substance: TADALAFIL
     Dosage: 5 MG, QOD

REACTIONS (5)
  - Headache [Recovered/Resolved]
  - Myalgia [Recovered/Resolved]
  - Joint stiffness [Recovered/Resolved]
  - Drug effect decreased [Unknown]
  - Back pain [Recovered/Resolved]
